FAERS Safety Report 16758083 (Version 7)
Quarter: 2020Q1

REPORT INFORMATION
  Report Type: Spontaneous
  Country: JP (occurrence: JP)
  Receive Date: 20190830
  Receipt Date: 20200127
  Transmission Date: 20200409
  Serious: Yes (Hospitalization, Other)
  Sender: FDA-Public Use
  Company Number: JP-BRISTOL-MYERS SQUIBB COMPANY-BMS-2019-084077

PATIENT
  Age: 78 Year
  Sex: Male

DRUGS (1)
  1. OPDIVO [Suspect]
     Active Substance: NIVOLUMAB
     Indication: GASTRIC CANCER
     Dosage: UNK
     Route: 041
     Dates: start: 20190507, end: 20190814

REACTIONS (7)
  - Secondary adrenocortical insufficiency [Recovering/Resolving]
  - Hypopituitarism [Unknown]
  - Platelet count decreased [Unknown]
  - Abulia [Not Recovered/Not Resolved]
  - Bone marrow disorder [Unknown]
  - Immune thrombocytopenic purpura [Unknown]
  - Haemorrhagic diathesis [Unknown]

NARRATIVE: CASE EVENT DATE: 20190816
